FAERS Safety Report 4784576-0 (Version None)
Quarter: 2005Q3

REPORT INFORMATION
  Report Type: 
  Country: None (occurrence: None)
  Receive Date: 20050929
  Receipt Date: 20050929
  Transmission Date: 20060218
  Serious: Yes (Other)
  Sender: FDA-Public Use
  Company Number: None

PATIENT
  Age: 74 Year
  Sex: Male
  Weight: 91.173 kg

DRUGS (2)
  1. SILDENAFIL CITRATE [Suspect]
     Indication: PHIMOSIS
     Dosage: 50MG PO
     Route: 048
     Dates: start: 20000701
  2. SILDENAFIL CITRATE [Suspect]
     Indication: PREPUCE REDUNDANT
     Dosage: 50MG PO
     Route: 048
     Dates: start: 20000701

REACTIONS (1)
  - BLINDNESS UNILATERAL [None]
